FAERS Safety Report 10468491 (Version 2)
Quarter: 2014Q3

REPORT INFORMATION
  Report Type: Spontaneous
  Country: US (occurrence: US)
  Receive Date: 20140922
  Receipt Date: 20140922
  Transmission Date: 20150326
  Serious: No
  Sender: FDA-Public Use
  Company Number: US-ALLERGAN-1310124US

PATIENT
  Age: 80 Year
  Sex: Female

DRUGS (2)
  1. LASTACAFT [Suspect]
     Active Substance: ALCAFTADINE
     Indication: SEASONAL ALLERGY
     Dosage: 2 GTT, QD
     Route: 047
     Dates: start: 20130516
  2. MULTIVITAMINS [Concomitant]
     Active Substance: VITAMINS
     Indication: PRODUCT USED FOR UNKNOWN INDICATION

REACTIONS (7)
  - Headache [Unknown]
  - Scleral hyperaemia [Unknown]
  - Visual acuity reduced [Unknown]
  - Conjunctivitis [Unknown]
  - Influenza like illness [Unknown]
  - Eye pain [Unknown]
  - Eye pruritus [Unknown]
